FAERS Safety Report 8320776-0 (Version None)
Quarter: 2012Q2

REPORT INFORMATION
  Report Type: 
  Country: None (occurrence: None)
  Receive Date: 20120430
  Receipt Date: 20120420
  Transmission Date: 20120825
  Serious: Yes (Other)
  Sender: FDA-Public Use
  Company Number: PHHY2012AU034479

PATIENT
  Sex: Male
  Weight: 92 kg

DRUGS (4)
  1. CLOZARIL [Suspect]
     Dosage: 400 MG, UNK
     Route: 048
     Dates: start: 20090101, end: 20120420
  2. CLOZARIL [Suspect]
     Dosage: 200 MG, UNK
     Route: 048
     Dates: start: 20120420
  3. HALOPERIDOL DECANOATE [Concomitant]
     Dosage: 150 MG, BIW
     Route: 030
  4. CLOZARIL [Suspect]
     Indication: SCHIZOPHRENIA, PARANOID TYPE
     Dosage: 400 MG, UNK
     Route: 048
     Dates: start: 20020328, end: 20040101

REACTIONS (12)
  - CARDIAC DISORDER [None]
  - BLOOD SODIUM DECREASED [None]
  - CARDIOMYOPATHY [None]
  - ALANINE AMINOTRANSFERASE INCREASED [None]
  - BLOOD URIC ACID INCREASED [None]
  - SINUS TACHYCARDIA [None]
  - EJECTION FRACTION DECREASED [None]
  - ANTIPSYCHOTIC DRUG LEVEL BELOW THERAPEUTIC [None]
  - ASPARTATE AMINOTRANSFERASE INCREASED [None]
  - GAMMA-GLUTAMYLTRANSFERASE INCREASED [None]
  - HEART VALVE INCOMPETENCE [None]
  - BLOOD CHOLESTEROL INCREASED [None]
